FAERS Safety Report 8886244 (Version 1)
Quarter: 2012Q4

REPORT INFORMATION
  Report Type: 
  Country: CA (occurrence: CA)
  Receive Date: 20121105
  Receipt Date: 20121105
  Transmission Date: 20130627
  Serious: Yes (Other)
  Sender: FDA-Public Use
  Company Number: CA-PFIZER INC-2012269574

PATIENT
  Age: 78 Year
  Sex: Female

DRUGS (2)
  1. CELEBREX [Suspect]
     Indication: OSTEOARTHRITIS
     Dosage: 200 mg, 1x/day
     Dates: start: 199904, end: 199907
  2. CELEBREX [Suspect]
     Dosage: 200 mg, 2x/day
     Dates: start: 200007

REACTIONS (1)
  - Atrial fibrillation [Unknown]
